FAERS Safety Report 15655870 (Version 1)
Quarter: 2018Q4

REPORT INFORMATION
  Report Type: Spontaneous
  Country: KR (occurrence: KR)
  Receive Date: 20181126
  Receipt Date: 20181126
  Transmission Date: 20190205
  Serious: Yes (Death, Other)
  Sender: FDA-Public Use
  Company Number: KR-009507513-1811KOR008353

PATIENT
  Sex: Female

DRUGS (25)
  1. ZOFRAN [Concomitant]
     Active Substance: ONDANSETRON HYDROCHLORIDE
     Dosage: UNK
     Dates: start: 20180914, end: 20181108
  2. DISOLRIN [Concomitant]
     Dosage: UNK
     Dates: start: 20181106, end: 20181106
  3. NICARDIPINE HYDROCHLORIDE. [Concomitant]
     Active Substance: NICARDIPINE HYDROCHLORIDE
     Dosage: UNK
     Dates: start: 20180917, end: 20181104
  4. KEYTRUDA [Suspect]
     Active Substance: PEMBROLIZUMAB
     Dosage: UNK
     Dates: start: 20180921, end: 20180921
  5. DEXTROSE. [Concomitant]
     Active Substance: DEXTROSE
     Dosage: UNK
     Dates: start: 20180914, end: 20181106
  6. FURTMAN [Concomitant]
     Dosage: UNK
     Dates: start: 20180914, end: 20181107
  7. MACPERAN [Suspect]
     Active Substance: METOCLOPRAMIDE HYDROCHLORIDE
     Dosage: UNK
  8. DEXTROSE. [Concomitant]
     Active Substance: DEXTROSE
     Dosage: UNK
     Dates: start: 20181017, end: 20181105
  9. DEXTROSE. [Concomitant]
     Active Substance: DEXTROSE
     Dosage: UNK
  10. TAMIPOOL [Concomitant]
     Active Substance: VITAMINS
     Dosage: UNK
     Dates: start: 20170914, end: 20181107
  11. DENOGAN [Concomitant]
     Active Substance: PROPACETAMOL HYDROCHLORIDE
     Dosage: UNK
     Dates: start: 20180924, end: 20181108
  12. HEPARIN SODIUM. [Concomitant]
     Active Substance: HEPARIN SODIUM
     Dosage: UNK
     Dates: start: 20180927, end: 20181105
  13. MEROPEN [Concomitant]
     Active Substance: MEROPENEM
     Dosage: UNK
     Dates: start: 20181105, end: 20181109
  14. AMBROXOL ILDONG [Concomitant]
     Dosage: 15 ML / 2 ML, UNK
     Dates: start: 20180920, end: 20181107
  15. SMOFKABIVEN [Concomitant]
     Active Substance: AMINO ACIDS\DEXTROSE\ELECTROLYTES NOS\SOYBEAN OIL
     Dosage: UNK
     Dates: start: 20180928, end: 20181107
  16. KEYTRUDA [Suspect]
     Active Substance: PEMBROLIZUMAB
     Dosage: UNK
     Dates: start: 201809, end: 201809
  17. BC MORPHINE SULFATE [Concomitant]
     Dosage: UNK
     Dates: start: 20180917, end: 20181109
  18. FRAGMIN [Concomitant]
     Active Substance: DALTEPARIN SODIUM
     Dosage: UNK
     Dates: start: 20181010, end: 20181109
  19. HERBEN [Concomitant]
     Active Substance: DILTIAZEM HYDROCHLORIDE
     Dosage: UNK
     Dates: start: 20181106, end: 20181106
  20. NEXIUM [Suspect]
     Active Substance: ESOMEPRAZOLE MAGNESIUM
     Dosage: UNK
  21. CURAN [Suspect]
     Active Substance: RANITIDINE HYDROCHLORIDE
     Dosage: UNK
     Dates: start: 20181024, end: 20181029
  22. BC MORPHINE SULFATE [Concomitant]
     Dosage: UNK
     Dates: start: 20181022, end: 20181031
  23. MAXIPIME [Concomitant]
     Active Substance: CEFEPIME HYDROCHLORIDE
     Dosage: UNK
     Dates: start: 20181017, end: 20181105
  24. MEROPEN [Concomitant]
     Active Substance: MEROPENEM
     Dosage: UNK
     Dates: start: 20181105, end: 20181107
  25. KEYTRUDA [Suspect]
     Active Substance: PEMBROLIZUMAB
     Dosage: UNK
     Dates: start: 20181102, end: 20181102

REACTIONS (1)
  - Death [Fatal]

NARRATIVE: CASE EVENT DATE: 201811
